FAERS Safety Report 23709086 (Version 1)
Quarter: 2024Q2

REPORT INFORMATION
  Report Type: Spontaneous
  Country: US (occurrence: None)
  Receive Date: 20240404
  Receipt Date: 20240404
  Transmission Date: 20240716
  Serious: No
  Sender: FDA-Public Use
  Company Number: None

PATIENT

DRUGS (2)
  1. ALBUMIN HUMAN [Suspect]
     Active Substance: ALBUMIN HUMAN
  2. NITROGLYCERIN [Suspect]
     Active Substance: NITROGLYCERIN

REACTIONS (5)
  - Product dispensing error [None]
  - Drug monitoring procedure not performed [None]
  - Wrong product administered [None]
  - Hypotension [None]
  - Incorrect drug administration rate [None]
